FAERS Safety Report 8898808 (Version 2)
Quarter: 2013Q2

REPORT INFORMATION
  Report Type: Spontaneous
  Country: CN (occurrence: CN)
  Receive Date: 20121109
  Receipt Date: 20130611
  Transmission Date: 20140414
  Serious: Yes (Hospitalization, Other)
  Sender: FDA-Public Use
  Company Number: CN-ASTRAZENECA-2012SE73726

PATIENT
  Age: 66 Year
  Sex: Male

DRUGS (11)
  1. CRESTOR [Suspect]
     Indication: CORONARY ARTERY DISEASE
     Route: 048
     Dates: start: 20120301, end: 20120923
  2. CRESTOR [Suspect]
     Indication: PERCUTANEOUS CORONARY INTERVENTION
     Route: 048
     Dates: start: 20120301, end: 20120923
  3. ASPIRIN [Concomitant]
     Route: 048
     Dates: start: 20120923
  4. ASPIRIN [Concomitant]
     Route: 048
     Dates: start: 20120923, end: 20121009
  5. PLAVIX [Concomitant]
     Route: 048
     Dates: start: 20120923
  6. VASOREL [Concomitant]
     Route: 048
     Dates: start: 20120923
  7. BETALOC ZOK [Concomitant]
     Route: 048
     Dates: start: 20120923
  8. ISOSORBIDE MONONITRATE [Concomitant]
     Dates: start: 20120914, end: 20120922
  9. PLETAAL [Concomitant]
  10. SODIUM BICARBONATE [Concomitant]
  11. WARFARIN [Concomitant]

REACTIONS (7)
  - Gastrointestinal haemorrhage [Unknown]
  - Coronary artery disease [Unknown]
  - Deep vein thrombosis [Unknown]
  - Blood creatine phosphokinase increased [Recovered/Resolved]
  - Myalgia [Unknown]
  - Rhabdomyolysis [Recovered/Resolved]
  - Drug ineffective for unapproved indication [Unknown]
